FAERS Safety Report 21596020 (Version 1)
Quarter: 2022Q4

REPORT INFORMATION
  Report Type: Spontaneous
  Country: US (occurrence: None)
  Receive Date: 20221114
  Receipt Date: 20221114
  Transmission Date: 20230113
  Serious: Yes (Other)
  Sender: FDA-Public Use
  Company Number: None

PATIENT
  Age: 75 Year
  Sex: Male
  Weight: 70.65 kg

DRUGS (1)
  1. BESREMI [Suspect]
     Active Substance: ROPEGINTERFERON ALFA-2B-NJFT
     Dosage: 100 UG EVERY 2 WEEKS SUBCUTANEOUS?
     Route: 058
     Dates: start: 20220718, end: 20221031

REACTIONS (1)
  - Rash [None]

NARRATIVE: CASE EVENT DATE: 20220831
